FAERS Safety Report 20109639 (Version 5)
Quarter: 2022Q2

REPORT INFORMATION
  Report Type: Spontaneous
  Country: CZ (occurrence: CZ)
  Receive Date: 20211124
  Receipt Date: 20220207
  Transmission Date: 20220721
  Serious: Yes (Hospitalization, Other)
  Sender: FDA-Public Use
  Company Number: CZ-FERRINGPH-2021FE07426

PATIENT

DRUGS (19)
  1. MINIRIN [Suspect]
     Active Substance: DESMOPRESSIN ACETATE
     Indication: Nocturia
     Dosage: 1 DF, 1 TIME DAILY, (0-0-0-1)
     Route: 048
  2. DARIFENACIN [Suspect]
     Active Substance: DARIFENACIN
     Indication: Urinary retention
     Dosage: 15 MG, 1 TIME DAILY (1-0-0)
     Route: 065
  3. DARIFENACIN [Suspect]
     Active Substance: DARIFENACIN
     Indication: Urinary tract infection
  4. DARIFENACIN [Suspect]
     Active Substance: DARIFENACIN
     Indication: Dysuria
  5. SOLIFENACIN [Suspect]
     Active Substance: SOLIFENACIN
     Indication: Urinary tract infection
     Dosage: 10 MG, 1 TIME DAILY (1-0-0)
     Route: 065
  6. SOLIFENACIN [Suspect]
     Active Substance: SOLIFENACIN
     Indication: Urinary retention
  7. SOLIFENACIN [Suspect]
     Active Substance: SOLIFENACIN
     Indication: Dysuria
  8. DOXAZOSIN [Suspect]
     Active Substance: DOXAZOSIN MESYLATE
     Indication: Hypertension
     Dosage: 4 MG, 1 TIME DAILY (0-0-1)
     Route: 065
  9. DOXAZOSIN [Suspect]
     Active Substance: DOXAZOSIN MESYLATE
     Indication: Lower urinary tract symptoms
  10. LEVETIRACETAM [Suspect]
     Active Substance: LEVETIRACETAM
     Indication: Product used for unknown indication
     Dosage: 500 MG, 2 TIMES DAILY (1-0-1)
     Route: 065
  11. GABAPENTIN [Suspect]
     Active Substance: GABAPENTIN
     Indication: Product used for unknown indication
     Dosage: 100 MG, 3 TIMES DAILY (1-1-1)
     Route: 065
  12. BISOPROLOL [Concomitant]
     Active Substance: BISOPROLOL
     Indication: Cardiac failure
     Dosage: 5 MG, 1 TIME DAILY (1-0-0)
     Route: 065
  13. PERINDOPRIL [Concomitant]
     Active Substance: PERINDOPRIL
     Indication: Cardiac failure
     Dosage: 4 MG, 1 TIME DAILY (1-0-0)
     Route: 065
  14. SPIRONOLACTONE [Concomitant]
     Active Substance: SPIRONOLACTONE
     Indication: Cardiac failure
     Dosage: 25 MG, 1 TIME DAILY (1-0-0)
     Route: 065
  15. LERCANIDIPINE [Concomitant]
     Active Substance: LERCANIDIPINE
     Dosage: 20 MG, 1 TIME DAILY (0-0-1)
     Route: 065
  16. OMEPRAZOLE [Concomitant]
     Active Substance: OMEPRAZOLE
     Dosage: 20 MG, 1 TIME DAILY (1-0-0)
     Route: 065
  17. ATORVASTATIN [Concomitant]
     Active Substance: ATORVASTATIN
     Indication: Product used for unknown indication
     Dosage: 15 MG, 1 TIME DAILY (0-0-1)
     Route: 065
  18. ASPIRIN [Concomitant]
     Active Substance: ASPIRIN
     Dosage: 100 MG, 1 TIME DAILY (1-0-0)
     Route: 065
  19. SODIUM CHLORIDE [Concomitant]
     Active Substance: SODIUM CHLORIDE
     Indication: Hyponatraemia
     Dosage: 1000 MG, 2 TIMES DAILY (1-0-1)
     Route: 065

REACTIONS (4)
  - Peripheral swelling [Recovered/Resolved]
  - Hyponatraemia [Recovered/Resolved]
  - Contraindicated product administered [Recovered/Resolved]
  - Labelled drug-disease interaction medication error [Recovered/Resolved]
